FAERS Safety Report 9050993 (Version 1)
Quarter: 2013Q1

REPORT INFORMATION
  Report Type: Spontaneous
  Country: JP (occurrence: JP)
  Receive Date: 20130205
  Receipt Date: 20130205
  Transmission Date: 20140127
  Serious: Yes (Other)
  Sender: FDA-Public Use
  Company Number: JP-PFIZER INC-2013041255

PATIENT
  Age: 60 Year
  Sex: Male

DRUGS (6)
  1. SOLANAX [Suspect]
     Dosage: 1.6 MG, DAILY
     Route: 048
     Dates: start: 201208
  2. ANCARON [Suspect]
     Dosage: UNK
  3. FOIPAN [Suspect]
     Indication: GASTROOESOPHAGEAL REFLUX DISEASE
     Dosage: UNK
  4. PARIET [Suspect]
     Indication: GASTROOESOPHAGEAL REFLUX DISEASE
     Dosage: UNK
  5. WARFARIN [Concomitant]
     Dosage: UNK
  6. MEILAX [Concomitant]
     Dosage: UNK

REACTIONS (8)
  - Aspartate aminotransferase increased [Unknown]
  - Alanine aminotransferase increased [Unknown]
  - Blood creatinine increased [Unknown]
  - Platelet count decreased [Unknown]
  - Drug dependence [Not Recovered/Not Resolved]
  - Tremor [Not Recovered/Not Resolved]
  - Somnolence [Not Recovered/Not Resolved]
  - Lip dry [Not Recovered/Not Resolved]
